FAERS Safety Report 4497911-8 (Version None)
Quarter: 2004Q4

REPORT INFORMATION
  Report Type: 
  Country: None (occurrence: None)
  Receive Date: 20041104
  Receipt Date: 20041004
  Transmission Date: 20050328
  Serious: Yes (Other)
  Sender: FDA-Public Use
  Company Number: 2004241054GB

PATIENT

DRUGS (1)
  1. XALATAN [Suspect]
     Dosage: OPHTHALMIC
     Route: 047

REACTIONS (5)
  - ABNORMAL SENSATION IN EYE [None]
  - DEVICE FAILURE [None]
  - EYE PAIN [None]
  - FOREIGN BODY TRAUMA [None]
  - SNEEZING [None]
